FAERS Safety Report 19220536 (Version 2)
Quarter: 2021Q3

REPORT INFORMATION
  Report Type: Spontaneous
  Country: GB (occurrence: GB)
  Receive Date: 20210506
  Receipt Date: 20210710
  Transmission Date: 20211014
  Serious: Yes (Other)
  Sender: FDA-Public Use
  Company Number: GB-ABBVIE-21K-167-3892476-00

PATIENT
  Age: 58 Year
  Sex: Male

DRUGS (1)
  1. TESTOGEL [Suspect]
     Active Substance: TESTOSTERONE
     Indication: BLOOD TESTOSTERONE DECREASED
     Dosage: SACHETS
     Route: 061

REACTIONS (4)
  - Mood swings [Unknown]
  - Abnormal weight gain [Unknown]
  - Steroid withdrawal syndrome [Unknown]
  - Asthenia [Unknown]
